FAERS Safety Report 11105916 (Version 2)
Quarter: 2015Q2

REPORT INFORMATION
  Report Type: Spontaneous
  Country: BR (occurrence: BR)
  Receive Date: 20150512
  Receipt Date: 20150623
  Transmission Date: 20150821
  Serious: Yes (Hospitalization, Other)
  Sender: FDA-Public Use
  Company Number: BR-JNJFOC-20150502786

PATIENT
  Age: 61 Year
  Sex: Male

DRUGS (2)
  1. ARAVA [Concomitant]
     Active Substance: LEFLUNOMIDE
     Route: 065
  2. SIMPONI [Suspect]
     Active Substance: GOLIMUMAB
     Indication: RHEUMATOID ARTHRITIS
     Route: 058
     Dates: start: 201311

REACTIONS (4)
  - Device malfunction [Unknown]
  - Knee deformity [Not Recovered/Not Resolved]
  - Pruritus [Recovered/Resolved]
  - Inappropriate schedule of drug administration [Unknown]

NARRATIVE: CASE EVENT DATE: 20150504
